FAERS Safety Report 24149179 (Version 2)
Quarter: 2024Q3

REPORT INFORMATION
  Report Type: Report from Study
  Country: CA (occurrence: CA)
  Receive Date: 20240729
  Receipt Date: 20240925
  Transmission Date: 20241017
  Serious: Yes (Hospitalization)
  Sender: ABBVIE
  Company Number: CA-ABBVIE-5857355

PATIENT
  Age: 30 Year
  Sex: Female

DRUGS (3)
  1. RINVOQ [Suspect]
     Active Substance: UPADACITINIB
     Indication: Colitis ulcerative
     Dosage: LAST ADMIN DATE-JUL 2024
     Route: 048
     Dates: start: 20240704
  2. RINVOQ [Suspect]
     Active Substance: UPADACITINIB
     Indication: Colitis ulcerative
     Route: 048
     Dates: start: 20240804
  3. CORTISONE [Concomitant]
     Active Substance: CORTISONE
     Indication: Large intestine infection
     Route: 042

REACTIONS (4)
  - Large intestine infection [Recovering/Resolving]
  - Confusional state [Unknown]
  - Pyrexia [Unknown]
  - Inflammation [Recovering/Resolving]

NARRATIVE: CASE EVENT DATE: 20240101
